FAERS Safety Report 5934242-0 (Version None)
Quarter: 2008Q4

REPORT INFORMATION
  Report Type: 
  Country: None (occurrence: None)
  Receive Date: 20081028
  Receipt Date: 20081028
  Transmission Date: 20090506
  Serious: Yes (Other)
  Sender: FDA-Public Use
  Company Number: None

PATIENT
  Age: 47 Year
  Sex: Female
  Weight: 99.7913 kg

DRUGS (1)
  1. LAMICTAL [Suspect]
     Indication: AFFECTIVE DISORDER
     Dosage: ONCE DAILY

REACTIONS (5)
  - ASTHMA [None]
  - DRUG HYPERSENSITIVITY [None]
  - DRY SKIN [None]
  - PRURITUS [None]
  - SWELLING FACE [None]
